FAERS Safety Report 10243900 (Version 1)
Quarter: 2014Q2

REPORT INFORMATION
  Report Type: Spontaneous
  Country: US (occurrence: None)
  Receive Date: 20140616
  Receipt Date: 20140616
  Transmission Date: 20141212
  Serious: Yes (Life-Threatening, Hospitalization, Other)
  Sender: FDA-Public Use
  Company Number: IPC201405-000291

PATIENT
  Age: 58 Year
  Sex: Female
  Weight: 108.9 kg

DRUGS (29)
  1. COREG (CARVEDILOL) (CARVEDILOL) [Suspect]
     Indication: TREMOR
     Dosage: 25 MG TABLET, 1 DOSAGE FORM TWICE DAILY, ORAL
     Route: 048
     Dates: start: 20110928
  2. DILAUDID (HYDROMORPHONE HYDROCHLORIDE) (HYDROMORPHONE HYDROCHLORIDE) [Suspect]
     Dosage: 24 MG, 4 MG, 1 DOSAGE FORM EVERY 4 HOURS, ORAL
     Route: 048
  3. KLONOPIN (CLONAZEPAM) (CLONAZEPAM) [Suspect]
     Dosage: 2.5 MG, ONE DOSAGE FORM TWICE DAILY
  4. NORVASC (AMLODIPIN BESILATE) (AMLODIPIN BESILATE) [Suspect]
     Dosage: EVERY NIGHT AT BEDTIME
  5. OXYCODONE (OXYCODONE) (OXYCODONE) [Suspect]
     Indication: PAIN
     Dosage: EVERY NIGHT AT BEDTIME
  6. KEFLEX (CEFALEXIN) (CEFALEXIN) [Suspect]
  7. SOMA (CARISOPRODOL) (CARISOPRODOL) [Suspect]
     Dosage: 350 MG EVERY 6 HRS OR 1 MG EVERY 4 HRS
  8. FENTANYL (FENTANYL) (FENTANYL) [Suspect]
     Indication: PAIN
  9. DILANTIN (PHENYTOIN) (PHENYTOIN) [Suspect]
     Indication: NEURALGIA
     Dosage: 100MG OR 200MG TID
  10. DURAGESIC (FENTANYL) (FENTANYL) [Suspect]
  11. PHENERGAN (CEPHAELIS SPP FLUID EXTRACT, CHLOROFORM, CITRIC ACID, DEXTROMETHORPHAN HYDROBROMIDE, PROMETHAZINE HYDROCHLORIDE, SODIUM CITRATE, SULFOGAIACOL) (CEPHAELIS SPP FLUID EXTRACT, CHLOROFORM, CITRIC AICD, DEXTROMORPHAN  HYDROBROMIDE, PROMETHAZINE HYD [Suspect]
  12. DIOVAN (VALSARTAN) (VALSARTAN) [Suspect]
     Route: 048
     Dates: end: 20110928
  13. FUROSEMIDE [Suspect]
     Dosage: EVERY NIGHT AT BEDTIME
  14. AMLODIPINE BESILATE (AMLODIPINE BESILATE) (AMLODIPINE BESILATE) [Suspect]
     Dosage: EVERY NIGHT AT BEDTIME
  15. METOCLOPRAMIDE HYDROCHLORIDE (METOCLOPRAMIDE HYDROCHLORIDE) (METOCLOPRAMIDE HYDROCHLORIDE) [Suspect]
     Route: 042
  16. PANTOPRAZOLE (PANTOPRAZOLE) (PANTOPRAZOLE) [Suspect]
     Indication: PRODUCT USED FOR UNKNOWN INDICATION
     Route: 048
  17. LIORESAL INTRATHECAL (BACLOFEN) (BACLOFEN) [Suspect]
     Indication: PAIN
     Route: 037
  18. VALSARTAN (VALSARTAN) (VALSARTAN) [Suspect]
  19. PARACETAMOL (PARACETAMOL) (PARACETAMOL) [Suspect]
  20. IBUPROFEN (IBUPROFEN) (IBUPROFEN) [Suspect]
     Dates: start: 20110924
  21. CLONAZEPAM (CLONAZEPAM) (CLONAZEPAM) [Suspect]
     Dosage: EVERY NIGHT AT BEDTIME
  22. CLONIDINE (CLONIDINE) (CLONIDINE) [Suspect]
     Dates: start: 20110928
  23. HYDROXYZINE (HYDROXYZINE) (HYDROXYZINE) [Suspect]
  24. ENOXAPARIN (ENOXAPARIN) (ENOXAPARIN) [Suspect]
     Route: 042
  25. CARISOPRODOL (CARISOPRODOL) (CARISOPRODOL) [Suspect]
  26. CARVEDILOL (CARVEDILOL) (CARVEDILOL) [Suspect]
  27. ORPHENADRINE (ORPHENADRINE) (ORPHENADRINE) [Suspect]
  28. MORPHINE (MORPHINE) (MORPHINE) [Suspect]
     Indication: PAIN
     Route: 037
  29. ATARAX (HYDROXYZINE) (HYDROXYZINE) [Suspect]
     Indication: TREMOR

REACTIONS (66)
  - Spinal column stenosis [None]
  - Tooth fracture [None]
  - Haemorrhage [None]
  - Wound [None]
  - Urinary casts [None]
  - Arthritis bacterial [None]
  - Osteomyelitis [None]
  - Contusion [None]
  - Throat irritation [None]
  - Hypertensive encephalopathy [None]
  - Neuralgia [None]
  - Back pain [None]
  - Anxiety [None]
  - Left ventricular hypertrophy [None]
  - Impaired gastric emptying [None]
  - Lumbar spinal stenosis [None]
  - Skin infection [None]
  - Influenza [None]
  - Implant site infection [None]
  - Staphylococcal infection [None]
  - Blood albumin decreased [None]
  - Blood calcium decreased [None]
  - Blood glucose increased [None]
  - Blood potassium decreased [None]
  - Respiratory rate increased [None]
  - Urinary tract infection [None]
  - Hypovolaemia [None]
  - Monoparesis [None]
  - Myositis [None]
  - Soft tissue infection [None]
  - Cellulitis [None]
  - Allodynia [None]
  - Cough [None]
  - Heart rate increased [None]
  - Anaemia [None]
  - Feeling hot [None]
  - Gait disturbance [None]
  - Dyspnoea [None]
  - Hypertensive crisis [None]
  - Hypoaesthesia [None]
  - Tremor [None]
  - Allergy to metals [None]
  - Medical device pain [None]
  - Abscess [None]
  - Muscle spasms [None]
  - Inadequate analgesia [None]
  - Hypertension [None]
  - Muscular weakness [None]
  - Pain in extremity [None]
  - Dehydration [None]
  - Convulsion [None]
  - Paraesthesia [None]
  - Meningitis [None]
  - Back pain [None]
  - Granuloma [None]
  - Blood magnesium decreased [None]
  - Blood sodium decreased [None]
  - Feeling abnormal [None]
  - Pyrexia [None]
  - Insomnia [None]
  - Headache [None]
  - Nausea [None]
  - Vomiting [None]
  - Dry mouth [None]
  - Implant site extravasation [None]
  - Intervertebral disc degeneration [None]
